APPROVED DRUG PRODUCT: LOZOL
Active Ingredient: INDAPAMIDE
Strength: 1.25MG **Federal Register determination that product was not discontinued or withdrawn for safety or effectiveness reasons**
Dosage Form/Route: TABLET;ORAL
Application: N018538 | Product #002
Applicant: SANOFI AVENTIS US LLC
Approved: Apr 29, 1993 | RLD: Yes | RS: No | Type: DISCN